FAERS Safety Report 13278772 (Version 2)
Quarter: 2017Q1

REPORT INFORMATION
  Report Type: Spontaneous
  Country: US (occurrence: US)
  Receive Date: 20170228
  Receipt Date: 20170317
  Transmission Date: 20170428
  Serious: Yes (Hospitalization)
  Sender: FDA-Public Use
  Company Number: US-SMITH AND NEPHEW, INC-2017SMT00115

PATIENT
  Age: 71 Year
  Sex: Female
  Weight: 92.63 kg

DRUGS (13)
  1. PROBIOTIC [Concomitant]
     Active Substance: PROBIOTICS NOS
  2. ELIQUIS [Concomitant]
     Active Substance: APIXABAN
  3. REGRANEX [Suspect]
     Active Substance: BECAPLERMIN
     Indication: WOUND
     Dosage: UNK, 2X/DAY EVERY 12 HOURS
     Route: 061
     Dates: start: 20170120, end: 20170121
  4. FISH OIL [Concomitant]
     Active Substance: FISH OIL
  5. DUONEB [Concomitant]
     Active Substance: ALBUTEROL SULFATE\IPRATROPIUM BROMIDE
     Dosage: 3 ML, 4X/DAY
     Route: 055
     Dates: start: 20161219
  6. NOVOLOG [Concomitant]
     Active Substance: INSULIN ASPART
     Dosage: 7 U, 3X/DAY AND SLIDING SCALE
     Route: 058
     Dates: start: 20170104
  7. K-TAB [Concomitant]
     Active Substance: POTASSIUM CHLORIDE
     Dosage: 20 MEQ, 2X/DAY
     Route: 048
     Dates: start: 20161221
  8. REGRANEX [Suspect]
     Active Substance: BECAPLERMIN
     Dosage: UNK, 2X/DAY EVERY 12 HOURS
     Route: 061
     Dates: start: 20170201, end: 20170207
  9. METOLAZONE. [Concomitant]
     Active Substance: METOLAZONE
  10. EXEMESTANE. [Concomitant]
     Active Substance: EXEMESTANE
     Dosage: UNK, 1X/DAY (QHS)
     Route: 048
     Dates: start: 20160520
  11. BUMETANIDE. [Concomitant]
     Active Substance: BUMETANIDE
  12. MAGNESIUM [Concomitant]
     Active Substance: MAGNESIUM
  13. BABY ASPIRIN [Concomitant]
     Active Substance: ASPIRIN

REACTIONS (4)
  - Hypokalaemia [Recovered/Resolved]
  - Ulcer [Recovering/Resolving]
  - Inappropriate schedule of drug administration [Recovered/Resolved]
  - Cellulitis [Unknown]

NARRATIVE: CASE EVENT DATE: 20170120
